FAERS Safety Report 9137443 (Version 5)
Quarter: 2013Q2

REPORT INFORMATION
  Report Type: Spontaneous
  Country: SG (occurrence: SG)
  Receive Date: 20130304
  Receipt Date: 20130417
  Transmission Date: 20140414
  Serious: Yes (Life-Threatening, Disabling, Other)
  Sender: FDA-Public Use
  Company Number: SG-ABBOTT-13P-141-1056392-00

PATIENT
  Sex: Male

DRUGS (8)
  1. HUMIRA [Suspect]
     Indication: ANKYLOSING SPONDYLITIS
     Dosage: EVERY 2 TO 3 WEEKS
     Route: 058
     Dates: start: 20120503, end: 20130108
  2. FAMOTIDINE [Concomitant]
     Indication: PROPHYLAXIS AGAINST GASTROINTESTINAL ULCER
     Route: 048
     Dates: start: 201206, end: 20130227
  3. SULFASALAZINE [Concomitant]
     Indication: ANKYLOSING SPONDYLITIS
     Route: 048
     Dates: start: 20120717, end: 20120910
  4. SULFASALAZINE [Concomitant]
     Route: 048
     Dates: start: 20120911, end: 20121009
  5. SULFASALAZINE [Concomitant]
     Route: 048
     Dates: start: 20121009, end: 20121127
  6. SULFASALAZINE [Concomitant]
     Route: 048
     Dates: start: 20130108, end: 20130227
  7. SULFASALAZINE [Concomitant]
     Dates: start: 20120717, end: 20121009
  8. DICLOFENAC [Concomitant]
     Indication: ANKYLOSING SPONDYLITIS
     Route: 048
     Dates: start: 201206, end: 20130227

REACTIONS (5)
  - Neoplasm [Not Recovered/Not Resolved]
  - Brain neoplasm [Unknown]
  - Lymphoma [Unknown]
  - Germ cell cancer [Unknown]
  - Germ cell cancer [Unknown]
